FAERS Safety Report 11782376 (Version 1)
Quarter: 2015Q4

REPORT INFORMATION
  Report Type: Spontaneous
  Country: KR (occurrence: KR)
  Receive Date: 20151127
  Receipt Date: 20151127
  Transmission Date: 20160305
  Serious: Yes (Hospitalization)
  Sender: FDA-Public Use
  Company Number: KR-AMGEN-KORCT2015125685

PATIENT
  Age: 66 Year
  Sex: Female
  Weight: 62.9 kg

DRUGS (16)
  1. G-LASTA [Suspect]
     Active Substance: PEGFILGRASTIM
     Dosage: 6 MG, 1X/3WEEKS
     Route: 058
     Dates: start: 20151018, end: 20151018
  2. CYCLOPHOSPHAMIDE. [Concomitant]
     Active Substance: CYCLOPHOSPHAMIDE
     Dosage: 693 MG, UNK
     Route: 042
     Dates: start: 20151107, end: 20151107
  3. G-LASTA [Suspect]
     Active Substance: PEGFILGRASTIM
     Indication: FEBRILE NEUTROPENIA
     Dosage: 6 MG, 1X/3WEEKS
     Route: 058
     Dates: start: 20150906, end: 20150906
  4. DOCETAXEL. [Concomitant]
     Active Substance: DOCETAXEL
     Dosage: 104 MG, UNK
     Route: 042
     Dates: start: 20150905, end: 20150905
  5. CYCLOPHOSPHAMIDE. [Concomitant]
     Active Substance: CYCLOPHOSPHAMIDE
     Dosage: 693 MG, UNK
     Route: 042
     Dates: start: 20150926, end: 20150926
  6. CYCLOPHOSPHAMIDE. [Concomitant]
     Active Substance: CYCLOPHOSPHAMIDE
     Dosage: 693 MG, UNK
     Route: 042
     Dates: start: 20151017, end: 20151017
  7. DOCETAXEL. [Concomitant]
     Active Substance: DOCETAXEL
     Dosage: 104 MG, UNK
     Route: 042
     Dates: start: 20151107, end: 20151107
  8. DOXORUBICIN [Concomitant]
     Active Substance: DOXORUBICIN
     Dosage: 70 MG, UNK
     Route: 042
     Dates: start: 20150905, end: 20150905
  9. G-LASTA [Suspect]
     Active Substance: PEGFILGRASTIM
     Dosage: 6 MG, 1X/3WEEKS
     Route: 058
     Dates: start: 20150927, end: 20150927
  10. G-LASTA [Suspect]
     Active Substance: PEGFILGRASTIM
     Dosage: 6 MG, 1X/3WEEKS
     Route: 058
     Dates: start: 20151108, end: 20151108
  11. DOCETAXEL. [Concomitant]
     Active Substance: DOCETAXEL
     Dosage: 104 MG, UNK
     Route: 042
     Dates: start: 20150926, end: 20150926
  12. DOCETAXEL. [Concomitant]
     Active Substance: DOCETAXEL
     Dosage: 104 MG, UNK
     Route: 042
     Dates: start: 20151017, end: 20151017
  13. DOXORUBICIN [Concomitant]
     Active Substance: DOXORUBICIN
     Dosage: 70 MG, UNK
     Route: 042
     Dates: start: 20150926, end: 20150926
  14. DOXORUBICIN [Concomitant]
     Active Substance: DOXORUBICIN
     Dosage: 70 MG, UNK
     Route: 042
     Dates: start: 20151107, end: 20151107
  15. DOXORUBICIN [Concomitant]
     Active Substance: DOXORUBICIN
     Dosage: 70 MG, UNK
     Route: 042
     Dates: start: 20151017, end: 20151017
  16. CYCLOPHOSPHAMIDE. [Concomitant]
     Active Substance: CYCLOPHOSPHAMIDE
     Dosage: 693 MG, UNK
     Route: 042
     Dates: start: 20150905, end: 20150905

REACTIONS (1)
  - Neutropenia [Recovered/Resolved]

NARRATIVE: CASE EVENT DATE: 20151113
